FAERS Safety Report 9693550 (Version 2)
Quarter: 2013Q4

REPORT INFORMATION
  Report Type: Spontaneous
  Country: NO (occurrence: NO)
  Receive Date: 20131118
  Receipt Date: 20131122
  Transmission Date: 20140711
  Serious: Yes (Hospitalization)
  Sender: FDA-Public Use
  Company Number: NO-GLAXOSMITHKLINE-B0943122A

PATIENT
  Sex: Male

DRUGS (1)
  1. DUODART [Suspect]
     Indication: PRODUCT USED FOR UNKNOWN INDICATION
     Dosage: 1TAB PER DAY
     Route: 065

REACTIONS (6)
  - Renal failure [Unknown]
  - Sepsis [Unknown]
  - Urinary retention [Unknown]
  - Blood creatinine increased [Unknown]
  - Azotaemia [Unknown]
  - Bladder dilatation [Unknown]
